FAERS Safety Report 5238549-4 (Version None)
Quarter: 2007Q1

REPORT INFORMATION
  Report Type: 
  Country: None (occurrence: None)
  Receive Date: 20070215
  Receipt Date: 20070208
  Transmission Date: 20070707
  Serious: Yes (Disabling, Other)
  Sender: FDA-Public Use
  Company Number: GB-GLAXOSMITHKLINE-B0458464A

PATIENT
  Age: 36 Year
  Sex: Female

DRUGS (2)
  1. ZYBAN [Suspect]
     Indication: SMOKING CESSATION THERAPY
     Dosage: 150MG TWICE PER DAY
     Route: 048
     Dates: start: 20061219, end: 20070129
  2. RANITIDINE [Concomitant]
     Dosage: 150MG TWICE PER DAY
     Route: 048

REACTIONS (2)
  - BLINDNESS [None]
  - VISION BLURRED [None]
